FAERS Safety Report 4983002-6 (Version None)
Quarter: 2006Q2

REPORT INFORMATION
  Report Type: 
  Country: None (occurrence: None)
  Receive Date: 20060420
  Receipt Date: 20060407
  Transmission Date: 20061013
  Serious: Yes (Other)
  Sender: FDA-Public Use
  Company Number: 2006049845

PATIENT
  Age: 58 Year
  Sex: Male
  Weight: 127.0072 kg

DRUGS (9)
  1. GLUCOTROL XL [Suspect]
     Indication: DIABETES MELLITUS
     Dosage: 20 MG (10 MG, 2 IN 1 D),ORAL
     Route: 048
     Dates: start: 19990701
  2. ALTACE [Concomitant]
  3. TENORMIN [Concomitant]
  4. ALLOPURINOL [Concomitant]
  5. GLUCOPHAGE (METFORMN HYDROCHLORIDE) [Concomitant]
  6. AVANDIA [Concomitant]
  7. LANTUS [Concomitant]
  8. ASPIRIN [Concomitant]
  9. VYTORIN [Concomitant]

REACTIONS (1)
  - PLATELET COUNT DECREASED [None]
